FAERS Safety Report 12463808 (Version 1)
Quarter: 2016Q2

REPORT INFORMATION
  Report Type: Spontaneous
  Country: PH (occurrence: PH)
  Receive Date: 20160614
  Receipt Date: 20160614
  Transmission Date: 20160815
  Serious: Yes (Other)
  Sender: FDA-Public Use
  Company Number: PH-ROCHE-1775242

PATIENT
  Age: 18 Year
  Sex: Female

DRUGS (5)
  1. MABTHERA [Suspect]
     Active Substance: RITUXIMAB
     Indication: DIFFUSE LARGE B-CELL LYMPHOMA
     Route: 065
     Dates: start: 201310, end: 201404
  2. VINCRISTINE [Concomitant]
     Active Substance: VINCRISTINE
  3. PREDNISOLONE. [Concomitant]
     Active Substance: PREDNISOLONE
  4. CYCLOPHOSPHAMIDE. [Concomitant]
     Active Substance: CYCLOPHOSPHAMIDE
  5. DOXORUBICINE [Concomitant]
     Active Substance: DOXORUBICIN

REACTIONS (1)
  - Depression [Unknown]
